FAERS Safety Report 5879921-9 (Version None)
Quarter: 2008Q3

REPORT INFORMATION
  Report Type: 
  Country: None (occurrence: None)
  Receive Date: 20080912
  Receipt Date: 20080901
  Transmission Date: 20090109
  Serious: Yes (Death, Hospitalization, Other)
  Sender: FDA-Public Use
  Company Number: GB-ELI_LILLY_AND_COMPANY-GB200809000424

PATIENT
  Age: 31 Year
  Sex: Female
  Weight: 55.5 kg

DRUGS (8)
  1. HUMALOG [Suspect]
     Dosage: UNK, UNKNOWN
     Route: 065
  2. AMITRIPTYLINE HCL [Concomitant]
     Dosage: 100 MG, DAILY (1/D)
     Route: 065
  3. BUSPIRONE HCL [Concomitant]
     Dosage: 5 MG, 2/D
     Route: 065
  4. DIAZEPAM [Concomitant]
     Dosage: 4 MG, 3/D
     Route: 065
  5. LEVEMIR [Concomitant]
     Dosage: UNK, UNKNOWN
     Route: 065
  6. PREGABALIN [Concomitant]
     Dosage: 300 MG, DAILY (1/D)
     Route: 065
  7. QUETIAPINE FUMARATE [Concomitant]
     Dosage: 250 MG, UNKNOWN
     Route: 065
  8. VALPROATE SODIUM [Concomitant]
     Dosage: 400 MG, 2/D
     Route: 065

REACTIONS (3)
  - CARDIAC DEATH [None]
  - DIABETES MELLITUS INADEQUATE CONTROL [None]
  - GENERALISED ANXIETY DISORDER [None]
